FAERS Safety Report 8832705 (Version 1)
Quarter: 2012Q4

REPORT INFORMATION
  Report Type: Spontaneous
  Country: US (occurrence: None)
  Receive Date: 20121009
  Receipt Date: 20121009
  Transmission Date: 20130627
  Serious: Yes (Hospitalization)
  Sender: FDA-Public Use
  Company Number: None

PATIENT
  Age: 92 Year
  Sex: Male

DRUGS (1)
  1. WARFARIN [Suspect]
     Indication: ATRIAL FIBRILLATION
     Dosage: 3 MG EVERY DAY PO
     Route: 048
     Dates: start: 20120710, end: 20120716

REACTIONS (10)
  - Exercise tolerance decreased [None]
  - Metastasis [None]
  - International normalised ratio increased [None]
  - Pleural effusion [None]
  - Haemothorax [None]
  - Hypophagia [None]
  - Anaemia [None]
  - Fatigue [None]
  - Dyspnoea [None]
  - Malignant neoplasm of pleura [None]
